FAERS Safety Report 19931483 (Version 5)
Quarter: 2022Q2

REPORT INFORMATION
  Report Type: Spontaneous
  Country: US (occurrence: US)
  Receive Date: 20211008
  Receipt Date: 20220624
  Transmission Date: 20220721
  Serious: No
  Sender: FDA-Public Use
  Company Number: US-AVEO ONCOLOGY-2021-AVEO-US003567

PATIENT

DRUGS (29)
  1. FOTIVDA [Suspect]
     Active Substance: TIVOZANIB HYDROCHLORIDE
     Indication: Renal cell carcinoma
     Dosage: 0.89 MG DAILY FOR 21 DAYS THEN 7 DAYS OFF
     Route: 048
     Dates: start: 20210824
  2. FOTIVDA [Suspect]
     Active Substance: TIVOZANIB HYDROCHLORIDE
     Dosage: 0.89 MG DAILY FOR 21 DAYS THEN 7 DAYS OFF
     Route: 048
     Dates: start: 20210826
  3. FOTIVDA [Suspect]
     Active Substance: TIVOZANIB HYDROCHLORIDE
     Dosage: 1.34 MG,  DAILY CAPSULE FOR 21 DAYS THEN 7 DAYS OFF
     Route: 048
     Dates: start: 20210826
  4. ALLOPURINOL [Concomitant]
     Active Substance: ALLOPURINOL
  5. AMLODIPINE BESYLATE [Concomitant]
     Active Substance: AMLODIPINE BESYLATE
  6. ASPIRIN [Concomitant]
     Active Substance: ASPIRIN
  7. ATORVASTATIN CALCIUM [Concomitant]
     Active Substance: ATORVASTATIN CALCIUM
  8. CARVEDILOL [Concomitant]
     Active Substance: CARVEDILOL
  9. CLONIDINE [Concomitant]
     Active Substance: CLONIDINE
  10. DEXAMETHASONE [Concomitant]
     Active Substance: DEXAMETHASONE
  11. ENTRESTO [Concomitant]
     Active Substance: SACUBITRIL\VALSARTAN
  12. FAMOTIDINE [Concomitant]
     Active Substance: FAMOTIDINE
  13. FLONASE [Concomitant]
     Active Substance: FLUTICASONE PROPIONATE
  14. HYDRALAZINE [Concomitant]
     Active Substance: HYDRALAZINE HYDROCHLORIDE
  15. JARDIANCE [Concomitant]
     Active Substance: EMPAGLIFLOZIN
  16. LEVOTHYROXINE [Concomitant]
     Active Substance: LEVOTHYROXINE
  17. POTASSIUM [Concomitant]
     Active Substance: POTASSIUM
  18. PREDNISONE [Concomitant]
     Active Substance: PREDNISONE
  19. TESTOSTERONE [Concomitant]
     Active Substance: TESTOSTERONE
  20. LASIX [Concomitant]
     Active Substance: FUROSEMIDE
  21. LORAZEPAM [Concomitant]
     Active Substance: LORAZEPAM
  22. NORCO [Concomitant]
     Active Substance: ACETAMINOPHEN\HYDROCODONE BITARTRATE
  23. PANTOPRAZOLE [Concomitant]
     Active Substance: PANTOPRAZOLE
  24. NORVASC [Concomitant]
     Active Substance: AMLODIPINE BESYLATE
  25. VITAMIN D [Concomitant]
     Active Substance: VITAMIN D NOS
  26. LIPITOR [Concomitant]
     Active Substance: ATORVASTATIN CALCIUM
  27. COREG [Concomitant]
     Active Substance: CARVEDILOL
  28. ASPIRIN [Concomitant]
     Active Substance: ASPIRIN
     Dosage: 81 UNK
  29. TORSEMIDE [Concomitant]
     Active Substance: TORSEMIDE

REACTIONS (13)
  - Fatigue [Unknown]
  - Blood pressure increased [Unknown]
  - Diarrhoea [Unknown]
  - Dysphonia [Unknown]
  - Gout [Unknown]
  - Dry mouth [Unknown]
  - Blister [Unknown]
  - Nasopharyngitis [Unknown]
  - Fall [Unknown]
  - Eye contusion [Recovering/Resolving]
  - Dizziness [Recovering/Resolving]
  - Hypersomnia [Unknown]
  - Asthenia [Unknown]
